FAERS Safety Report 19927687 (Version 1)
Quarter: 2021Q4

REPORT INFORMATION
  Report Type: Spontaneous
  Country: US (occurrence: US)
  Receive Date: 20211007
  Receipt Date: 20211007
  Transmission Date: 20220303
  Serious: No
  Sender: FDA-Public Use
  Company Number: US-INDIVIOR US-INDV-128442-2021

PATIENT

DRUGS (3)
  1. SUBLOCADE [Suspect]
     Active Substance: BUPRENORPHINE
     Indication: Product used for unknown indication
     Dosage: 300 MILLIGRAM,QMO
     Route: 065
     Dates: start: 202012
  2. SUBLOCADE [Suspect]
     Active Substance: BUPRENORPHINE
     Dosage: 300 MILLIGRAM,QMO
     Route: 065
     Dates: start: 202101
  3. MAVYRET [Concomitant]
     Active Substance: GLECAPREVIR\PIBRENTASVIR
     Indication: Hepatitis C
     Dosage: UNK
     Route: 065
     Dates: start: 202101, end: 202102

REACTIONS (1)
  - Oedema peripheral [Recovered/Resolved]
